FAERS Safety Report 16257627 (Version 1)
Quarter: 2019Q2

REPORT INFORMATION
  Report Type: Report from Study
  Country: US (occurrence: US)
  Receive Date: 20190430
  Receipt Date: 20190430
  Transmission Date: 20190711
  Serious: No
  Sender: FDA-Public Use
  Company Number: US-AGIOS-1901US00605

PATIENT

DRUGS (2)
  1. TIBSOVO [Suspect]
     Active Substance: IVOSIDENIB
     Indication: CONNECTIVE TISSUE NEOPLASM
     Dosage: 250 MILLIGRAM, QD
     Dates: start: 20190125
  2. TIBSOVO [Suspect]
     Active Substance: IVOSIDENIB
     Indication: SOFT TISSUE NEOPLASM

REACTIONS (2)
  - Off label use [Unknown]
  - Incorrect dose administered [Unknown]

NARRATIVE: CASE EVENT DATE: 20190125
